FAERS Safety Report 10472737 (Version 1)
Quarter: 2014Q3

REPORT INFORMATION
  Report Type: Spontaneous
  Country: US (occurrence: US)
  Receive Date: 20140924
  Receipt Date: 20140924
  Transmission Date: 20150326
  Serious: No
  Sender: FDA-Public Use
  Company Number: US-BANPHARM-20142812

PATIENT
  Age: 82 Year
  Sex: Female
  Weight: 82.55 kg

DRUGS (3)
  1. LYRI CA [Concomitant]
  2. LOPERAMIDE HCL [Suspect]
     Active Substance: LOPERAMIDE HYDROCHLORIDE
     Indication: DIARRHOEA
     Dosage: 2 DF, THEN 1 DF, 4 HOURS LATER
     Dates: start: 20140612
  3. WARFA R I N [Concomitant]

REACTIONS (1)
  - Rectal haemorrhage [Recovered/Resolved]

NARRATIVE: CASE EVENT DATE: 20140612
